FAERS Safety Report 5521800-0 (Version None)
Quarter: 2007Q4

REPORT INFORMATION
  Report Type: 
  Country: None (occurrence: None)
  Receive Date: 20071120
  Receipt Date: 20071108
  Transmission Date: 20080405
  Serious: Yes (Other)
  Sender: FDA-Public Use
  Company Number: NL-JNJFOC-20071104449

PATIENT
  Age: 17 Year
  Sex: Male

DRUGS (2)
  1. RISPERIDONE [Suspect]
  2. RISPERIDONE [Suspect]
     Indication: SCHIZOPHRENIA

REACTIONS (5)
  - AUTONOMIC NERVOUS SYSTEM IMBALANCE [None]
  - DYSPNOEA [None]
  - SALIVARY HYPERSECRETION [None]
  - THROAT TIGHTNESS [None]
  - TONGUE DISORDER [None]
